FAERS Safety Report 14410158 (Version 6)
Quarter: 2018Q3

REPORT INFORMATION
  Report Type: Report from Study
  Country: None (occurrence: US)
  Receive Date: 20180119
  Receipt Date: 20180730
  Transmission Date: 20181010
  Serious: Yes (Hospitalization, Other)
  Sender: FDA-Public Use
  Company Number: US-ABBVIE-18K-163-2229037-00

PATIENT
  Age: 68 Year
  Sex: Female
  Weight: 54.48 kg

DRUGS (4)
  1. HUMIRA [Suspect]
     Active Substance: ADALIMUMAB
     Indication: CROHN^S DISEASE
     Route: 058
     Dates: start: 2017, end: 201801
  2. HUMIRA [Suspect]
     Active Substance: ADALIMUMAB
     Route: 058
     Dates: start: 20180131, end: 20180711
  3. EUCERIN [Concomitant]
     Active Substance: ENSULIZOLE\EUCERIN\OCTINOXATE\OCTISALATE\TITANIUM DIOXIDE\ZINC OXIDE
     Indication: PRODUCT USED FOR UNKNOWN INDICATION
  4. TYLENOL WITH CODEINE [Concomitant]
     Active Substance: ACETAMINOPHEN\CODEINE PHOSPHATE
     Indication: PAIN

REACTIONS (24)
  - Gallbladder disorder [Unknown]
  - Gastric ulcer perforation [Recovering/Resolving]
  - Frequent bowel movements [Unknown]
  - Sepsis [Not Recovered/Not Resolved]
  - Drug effect decreased [Not Recovered/Not Resolved]
  - Weight decreased [Not Recovered/Not Resolved]
  - Dehydration [Unknown]
  - Colitis ulcerative [Unknown]
  - Urinary tract infection [Recovering/Resolving]
  - Pancreatitis [Not Recovered/Not Resolved]
  - Hypotension [Unknown]
  - Gallbladder operation [Recovering/Resolving]
  - Diarrhoea [Unknown]
  - Kidney infection [Recovered/Resolved]
  - Cystitis bacterial [Recovering/Resolving]
  - Crohn^s disease [Unknown]
  - Colitis microscopic [Unknown]
  - Hypophagia [Unknown]
  - Diarrhoea [Recovered/Resolved]
  - Haemorrhoids [Unknown]
  - Pneumonia [Recovered/Resolved]
  - Irritable bowel syndrome [Unknown]
  - Wheezing [Recovering/Resolving]
  - Upper respiratory tract infection [Unknown]

NARRATIVE: CASE EVENT DATE: 2018
